FAERS Safety Report 9913365 (Version 2)
Quarter: 2014Q1

REPORT INFORMATION
  Report Type: Spontaneous
  Country: US (occurrence: US)
  Receive Date: 20140220
  Receipt Date: 20140318
  Transmission Date: 20141002
  Serious: Yes (Other)
  Sender: FDA-Public Use
  Company Number: US-US-EMD SERONO, INC.-7265898

PATIENT
  Sex: Female

DRUGS (4)
  1. GONAL-F [Suspect]
     Indication: OVULATION INDUCTION
     Dates: start: 2013
  2. GONAL-F [Suspect]
     Dates: start: 20140106, end: 20140113
  3. CETROTIDE (CETRORELIX ACETATE FOR INJECTION) [Suspect]
     Indication: PRODUCT USED FOR UNKNOWN INDICATION
     Dates: start: 2013
  4. CETROTIDE (CETRORELIX ACETATE FOR INJECTION) [Suspect]
     Dates: start: 20140110, end: 20140113

REACTIONS (2)
  - Abortion spontaneous [Recovered/Resolved]
  - Cytogenetic abnormality [Recovered/Resolved]
